FAERS Safety Report 9046967 (Version 3)
Quarter: 2013Q1

REPORT INFORMATION
  Report Type: Spontaneous
  Country: JP (occurrence: JP)
  Receive Date: 20130204
  Receipt Date: 20130320
  Transmission Date: 20140127
  Serious: Yes (Hospitalization)
  Sender: FDA-Public Use
  Company Number: JP-ELI_LILLY_AND_COMPANY-JP201301007868

PATIENT
  Age: 53 Year
  Sex: Male
  Weight: 62 kg

DRUGS (4)
  1. ZYPREXA [Suspect]
     Indication: SCHIZOPHRENIA
     Dosage: 20 MG, QD
     Route: 048
     Dates: end: 20110617
  2. ABILIFY [Concomitant]
     Dosage: UNK
     Route: 048
     Dates: end: 20110617
  3. TOLOPELON [Concomitant]
     Dosage: UNK
     Route: 048
     Dates: end: 20110617
  4. BIPERIDEN [Concomitant]

REACTIONS (5)
  - Neuroleptic malignant syndrome [Recovered/Resolved]
  - Acute prerenal failure [Recovered/Resolved]
  - Dehydration [Recovered/Resolved]
  - Pneumatosis intestinalis [Recovered/Resolved]
  - Portal venous gas [Recovered/Resolved]
